FAERS Safety Report 7790930-5 (Version None)
Quarter: 2011Q3

REPORT INFORMATION
  Report Type: 
  Country: None (occurrence: None)
  Receive Date: 20110930
  Receipt Date: 20110930
  Transmission Date: 20111222
  Serious: No
  Sender: FDA-Public Use
  Company Number: None

PATIENT
  Sex: Male

DRUGS (1)
  1. MARCAINE [Suspect]
     Dosage: 2ML
     Route: 037
     Dates: start: 20110928, end: 20110928

REACTIONS (1)
  - DRUG EFFECT DELAYED [None]
